FAERS Safety Report 15595931 (Version 5)
Quarter: 2019Q1

REPORT INFORMATION
  Report Type: Report from Study
  Country: AU (occurrence: AU)
  Receive Date: 20181107
  Receipt Date: 20190306
  Transmission Date: 20190417
  Serious: Yes (Hospitalization, Other)
  Sender: FDA-Public Use
  Company Number: AU-REGENERON PHARMACEUTICALS, INC.-2018-43680

PATIENT

DRUGS (3)
  1. EYLEA [Suspect]
     Active Substance: AFLIBERCEPT
     Dosage: INTERVAL WAS 5 WEEKS
     Route: 031
  2. EYLEA [Suspect]
     Active Substance: AFLIBERCEPT
     Dosage: LEFT EYE -INTERVAL WAS 4 WEEKS
     Route: 031
  3. EYLEA [Suspect]
     Active Substance: AFLIBERCEPT
     Indication: NEOVASCULAR AGE-RELATED MACULAR DEGENERATION
     Dosage: INTRAVITREAL INJECTIONS TO BOTH EYES
     Route: 031

REACTIONS (6)
  - Scab [Not Recovered/Not Resolved]
  - Post procedural infection [Recovering/Resolving]
  - Cataract [Not Recovered/Not Resolved]
  - Hordeolum [Recovered/Resolved]
  - Eye inflammation [Unknown]
  - Inappropriate schedule of product administration [Recovered/Resolved]

NARRATIVE: CASE EVENT DATE: 20180824
